FAERS Safety Report 7089245-2 (Version None)
Quarter: 2010Q4

REPORT INFORMATION
  Report Type: 
  Country: None (occurrence: None)
  Receive Date: 20101108
  Receipt Date: 20101029
  Transmission Date: 20110411
  Serious: Yes (Other)
  Sender: FDA-Public Use
  Company Number: JP-MERCK-1008USA02959

PATIENT
  Age: 22 Year
  Sex: Male
  Weight: 66 kg

DRUGS (1)
  1. PROPECIA [Suspect]
     Indication: ANDROGENETIC ALOPECIA
     Route: 048
     Dates: start: 20061007, end: 20100821

REACTIONS (1)
  - DIABETES MELLITUS [None]
